FAERS Safety Report 14958122 (Version 1)
Quarter: 2018Q2

REPORT INFORMATION
  Report Type: Spontaneous
  Country: US (occurrence: US)
  Receive Date: 20180531
  Receipt Date: 20180531
  Transmission Date: 20180711
  Serious: No
  Sender: FDA-Public Use
  Company Number: US-IMPAX LABORATORIES, INC-2017-IPXL-00537

PATIENT
  Sex: Female

DRUGS (3)
  1. PROPRANOLOL HYDROCHLORIDE IR [Suspect]
     Active Substance: PROPRANOLOL HYDROCHLORIDE
     Dosage: UNK, FOR THE LAST 2 MONTHS
     Route: 065
     Dates: start: 2016
  2. PROPRANOLOL HYDROCHLORIDE IR [Suspect]
     Active Substance: PROPRANOLOL HYDROCHLORIDE
     Indication: HYPERTENSION
     Dosage: UNK, FOR OVER 10 YEARS
     Route: 065
  3. PROPRANOLOL HYDROCHLORIDE IR [Suspect]
     Active Substance: PROPRANOLOL HYDROCHLORIDE
     Dosage: 40 MG, 1 TABLET TWICE A DAY
     Route: 048
     Dates: start: 2017

REACTIONS (6)
  - Product friable [Recovered/Resolved]
  - Product taste abnormal [Recovered/Resolved]
  - Hypoaesthesia oral [Recovered/Resolved]
  - Weight decreased [Not Recovered/Not Resolved]
  - Expired product administered [Unknown]
  - Tremor [Recovered/Resolved]

NARRATIVE: CASE EVENT DATE: 2016
